FAERS Safety Report 6639196-X (Version None)
Quarter: 2010Q1

REPORT INFORMATION
  Report Type: 
  Country: None (occurrence: None)
  Receive Date: 20100317
  Receipt Date: 20100310
  Transmission Date: 20100710
  Serious: Yes (Hospitalization)
  Sender: FDA-Public Use
  Company Number: US-ROCHE-690692

PATIENT
  Sex: Male
  Weight: 83.9 kg

DRUGS (7)
  1. PEGASYS [Suspect]
     Indication: HEPATITIS C
     Route: 058
     Dates: start: 20040101
  2. PEGASYS [Suspect]
     Route: 058
     Dates: start: 20100127
  3. RIBAVIRIN [Suspect]
     Indication: HEPATITIS C
     Route: 048
     Dates: start: 20040101
  4. RIBAVIRIN [Suspect]
     Route: 048
     Dates: start: 20100127
  5. RIBAVIRIN [Suspect]
     Dosage: LOWERED DOSE
     Route: 048
  6. AMBIEN [Concomitant]
  7. CLONAZEPAM [Concomitant]

REACTIONS (5)
  - CARDIAC FAILURE CONGESTIVE [None]
  - HAEMOGLOBIN DECREASED [None]
  - INFECTION [None]
  - PNEUMONIA [None]
  - URINARY TRACT INFECTION [None]
